FAERS Safety Report 4791779-8 (Version None)
Quarter: 2005Q4

REPORT INFORMATION
  Report Type: 
  Country: None (occurrence: None)
  Receive Date: 20051005
  Receipt Date: 20050921
  Transmission Date: 20060501
  Serious: Yes (Hospitalization)
  Sender: FDA-Public Use
  Company Number: MK200509-0253-1

PATIENT
  Age: 79 Year
  Sex: Female

DRUGS (9)
  1. TRAMADOL HYDROCLORIDE [Suspect]
     Indication: PROCEDURAL PAIN
     Dosage: 450 MG TOTAL
  2. INDAPAMIDE [Concomitant]
  3. ATENOLOL [Concomitant]
  4. VALSARTAN [Concomitant]
  5. PARACETAMOL [Concomitant]
  6. TIAPROFENIC ACID [Concomitant]
  7. ONDANSETRON [Concomitant]
  8. NORMAL SALINE 1 1 [Concomitant]
  9. INTRAVENOUS DEXTROSE SALINE [Concomitant]

REACTIONS (10)
  - ABDOMINAL PAIN [None]
  - BLOOD OSMOLARITY DECREASED [None]
  - CHEST PAIN [None]
  - CONFUSIONAL STATE [None]
  - DEHYDRATION [None]
  - FLUID RETENTION [None]
  - GRAND MAL CONVULSION [None]
  - HYPONATRAEMIA [None]
  - NAUSEA [None]
  - VOMITING [None]
